FAERS Safety Report 14380655 (Version 1)
Quarter: 2018Q1

REPORT INFORMATION
  Report Type: Spontaneous
  Country: US (occurrence: US)
  Receive Date: 20180112
  Receipt Date: 20180112
  Transmission Date: 20180509
  Serious: No
  Sender: FDA-Public Use
  Company Number: US-GLAXOSMITHKLINE-US2018002933

PATIENT
  Age: 61 Year
  Sex: Female

DRUGS (1)
  1. ABREVA [Suspect]
     Active Substance: DOCOSANOL
     Indication: ORAL HERPES
     Dosage: USED EVERY 2 HOURS MORE THAN 5 TIMES A DAY
     Dates: start: 20171219, end: 20180101

REACTIONS (7)
  - Application site exfoliation [Recovered/Resolved]
  - Hypersensitivity [Recovered/Resolved]
  - Drug ineffective [Recovered/Resolved]
  - Oral herpes [Recovered/Resolved]
  - Condition aggravated [Recovered/Resolved]
  - Inappropriate schedule of drug administration [Unknown]
  - Incorrect drug administration duration [Unknown]
